FAERS Safety Report 4659051-4 (Version None)
Quarter: 2005Q2

REPORT INFORMATION
  Report Type: 
  Country: None (occurrence: None)
  Receive Date: 20050509
  Receipt Date: 20050426
  Transmission Date: 20051028
  Serious: Yes (Hospitalization)
  Sender: FDA-Public Use
  Company Number: A0548594A

PATIENT
  Age: 56 Year
  Sex: Female
  Weight: 63.4582 kg

DRUGS (1)
  1. ADVAIR DISKUS 100/50 [Suspect]
     Indication: ASTHMA
     Dosage: 1 PUFF(S)/PER DAY/INHALED
     Route: 055
     Dates: start: 20030125, end: 20030215

REACTIONS (6)
  - CROHN'S DISEASE [None]
  - DRUG HYPERSENSITIVITY [None]
  - DYSPNOEA [None]
  - FEELING ABNORMAL [None]
  - INTESTINAL ULCER [None]
  - VOCAL CORD DISORDER [None]
